FAERS Safety Report 15282087 (Version 1)
Quarter: 2018Q3

REPORT INFORMATION
  Report Type: Spontaneous
  Country: US (occurrence: US)
  Receive Date: 20180731
  Receipt Date: 20180731
  Transmission Date: 20181010
  Serious: Yes (Hospitalization, Other)
  Sender: FDA-Public Use
  Company Number: None

PATIENT
  Age: 48 Year
  Sex: Female
  Weight: 78.75 kg

DRUGS (10)
  1. SUMATRIPTAN SUCCINATE. [Concomitant]
     Active Substance: SUMATRIPTAN SUCCINATE
  2. TIZANIDINE. [Concomitant]
     Active Substance: TIZANIDINE
  3. ESCITALOPRAM OXALATE. [Concomitant]
     Active Substance: ESCITALOPRAM OXALATE
  4. ONDANSETRON HCI (ZOFRAN) [Concomitant]
  5. DIPINE (AMLODIPINE) [Concomitant]
  6. CYANOCOBALAMIN (VITAMIN B?12) [Concomitant]
  7. IRBESARTAN?HYDROCHLOROTHIAZIDE [Concomitant]
  8. VALSARTAN HCTZ [Suspect]
     Active Substance: HYDROCHLOROTHIAZIDE\VALSARTAN
     Indication: HYPERTENSION
     Dosage: ?          QUANTITY:1 TABLET(S);?
     Route: 048
  9. CHOLECALCIFEROL (VITAMIN D3) [Concomitant]
  10. ELUXADOLINE (VIBERZI) [Concomitant]

REACTIONS (3)
  - Hepatic cyst [None]
  - Hepatic steatosis [None]
  - Ultrasound liver abnormal [None]

NARRATIVE: CASE EVENT DATE: 20180426
